FAERS Safety Report 14762633 (Version 1)
Quarter: 2018Q2

REPORT INFORMATION
  Report Type: Spontaneous
  Country: US (occurrence: US)
  Receive Date: 20180409
  Receipt Date: 20180409
  Transmission Date: 20180711
  Serious: Yes (Other)
  Sender: FDA-Public Use
  Company Number: None

PATIENT
  Age: 64 Year
  Sex: Female
  Weight: 56.7 kg

DRUGS (1)
  1. ESTRADIOL PATCH 0.025MG [Suspect]
     Active Substance: ESTRADIOL
     Indication: MENOPAUSAL SYMPTOMS
     Dosage: 0.025MG 2X/WK
     Route: 062
     Dates: start: 20150706, end: 20151022

REACTIONS (3)
  - Product substitution issue [None]
  - Weight increased [None]
  - Breast disorder [None]

NARRATIVE: CASE EVENT DATE: 20151022
